FAERS Safety Report 4839546-0 (Version None)
Quarter: 2005Q4

REPORT INFORMATION
  Report Type: 
  Country: None (occurrence: None)
  Receive Date: 20051129
  Receipt Date: 20051124
  Transmission Date: 20060501
  Serious: Yes (Hospitalization, Other)
  Sender: FDA-Public Use
  Company Number: DE-AVENTIS-200512713DE

PATIENT
  Age: 55 Year
  Sex: Female

DRUGS (10)
  1. CLEXANE [Suspect]
     Indication: THROMBOSIS PROPHYLAXIS
     Route: 058
     Dates: start: 20020712, end: 20020812
  2. CLEXANE [Suspect]
     Route: 058
     Dates: start: 20020815, end: 20020822
  3. CLEXANE [Suspect]
     Indication: SPINAL OPERATION
     Route: 058
     Dates: start: 20020712, end: 20020812
  4. CLEXANE [Suspect]
     Route: 058
     Dates: start: 20020815, end: 20020822
  5. MUSARIL [Concomitant]
     Dates: start: 20020712, end: 20020819
  6. DECORTIN [Concomitant]
     Dates: start: 20020301, end: 20020711
  7. DECORTIN [Concomitant]
     Dates: start: 20020712, end: 20020815
  8. FORTECORTIN [Concomitant]
     Dosage: DOSE: 12-8-8
     Dates: start: 20020815, end: 20020822
  9. AZAMEDAC [Concomitant]
     Indication: SYSTEMIC LUPUS ERYTHEMATOSUS
     Dates: start: 20020528, end: 20020723
  10. IMUREK [Concomitant]
     Indication: SYSTEMIC LUPUS ERYTHEMATOSUS
     Dates: start: 20020702, end: 20020723

REACTIONS (5)
  - BLISTER [None]
  - ERYTHEMA [None]
  - RASH ERYTHEMATOUS [None]
  - SWELLING FACE [None]
  - TOXIC EPIDERMAL NECROLYSIS [None]
